FAERS Safety Report 8536953-X (Version None)
Quarter: 2012Q3

REPORT INFORMATION
  Report Type: 
  Country: None (occurrence: None)
  Receive Date: 20120713
  Receipt Date: 20120626
  Transmission Date: 20120928
  Serious: Yes (Hospitalization)
  Sender: FDA-Public Use
  Company Number: JPI-P-022320

PATIENT
  Age: 55 Year
  Sex: Female
  Weight: 138.8007 kg

DRUGS (3)
  1. XYREM [Suspect]
     Indication: FIBROMYALGIA
     Dosage: 4.5 GM (2.25 GM, 2 IN 1 D), ORAL, (TITRATING DOSE), ORAL, 6 GM (3 GM, 2 IN 1 D), ORAL
     Route: 048
     Dates: end: 20050930
  2. XYREM [Suspect]
     Indication: FIBROMYALGIA
     Dosage: 4.5 GM (2.25 GM, 2 IN 1 D), ORAL, (TITRATING DOSE), ORAL, 6 GM (3 GM, 2 IN 1 D), ORAL
     Route: 048
     Dates: start: 20050324
  3. HYDROCODONE BITARTRATE AND ACETAMINOPHEN [Concomitant]

REACTIONS (6)
  - SURGICAL PROCEDURE REPEATED [None]
  - HYPERTENSION [None]
  - CONDITION AGGRAVATED [None]
  - ATRIAL FIBRILLATION [None]
  - KNEE ARTHROPLASTY [None]
  - BLOOD POTASSIUM INCREASED [None]
